FAERS Safety Report 18519032 (Version 7)
Quarter: 2025Q2

REPORT INFORMATION
  Report Type: Report from Study
  Country: BR (occurrence: BR)
  Receive Date: 20201118
  Receipt Date: 20250507
  Transmission Date: 20250716
  Serious: Yes (Other)
  Sender: TAKEDA
  Company Number: BR-TAKEDA-BR202016376

PATIENT
  Age: 1 Year
  Sex: Male
  Weight: 11 kg

DRUGS (19)
  1. HEMO-8R [Suspect]
     Active Substance: ANTIHEMOPHILIC FACTOR, HUMAN RECOMBINANT
     Indication: Factor VIII deficiency
     Dosage: 250 INTERNATIONAL UNIT, Q2WEEKS
     Dates: start: 20200211
  2. HEMO-8R [Suspect]
     Active Substance: ANTIHEMOPHILIC FACTOR, HUMAN RECOMBINANT
     Indication: Prophylaxis
     Dosage: 250 INTERNATIONAL UNIT, Q2WEEKS
     Dates: start: 20200604
  3. HEMO-8R [Suspect]
     Active Substance: ANTIHEMOPHILIC FACTOR, HUMAN RECOMBINANT
     Dosage: 250 INTERNATIONAL UNIT, Q2WEEKS
     Dates: start: 20200512
  4. HEMO-8R [Suspect]
     Active Substance: ANTIHEMOPHILIC FACTOR, HUMAN RECOMBINANT
     Dosage: 250 INTERNATIONAL UNIT, Q3WEEKS
     Dates: start: 20200907
  5. HEMO-8R [Suspect]
     Active Substance: ANTIHEMOPHILIC FACTOR, HUMAN RECOMBINANT
     Dosage: 500 INTERNATIONAL UNIT, Q3WEEKS
     Dates: start: 20200512
  6. HEMO-8R [Suspect]
     Active Substance: ANTIHEMOPHILIC FACTOR, HUMAN RECOMBINANT
  7. HEMO-8R [Suspect]
     Active Substance: ANTIHEMOPHILIC FACTOR, HUMAN RECOMBINANT
     Dosage: 750 INTERNATIONAL UNIT, 3/WEEK
     Dates: start: 20210811
  8. HEMO-8R [Suspect]
     Active Substance: ANTIHEMOPHILIC FACTOR, HUMAN RECOMBINANT
     Dosage: 1000 INTERNATIONAL UNIT, 3/WEEK
     Dates: start: 20200201
  9. HEMO-8R [Suspect]
     Active Substance: ANTIHEMOPHILIC FACTOR, HUMAN RECOMBINANT
     Dosage: 1000 INTERNATIONAL UNIT, 3/WEEK
     Dates: start: 2020
  10. FEIBA NF [Suspect]
     Active Substance: ANTI-INHIBITOR COAGULANT COMPLEX
     Indication: Factor VIII deficiency
     Dosage: 1500 INTERNATIONAL UNIT, 3/WEEK
     Dates: start: 20210201
  11. FEIBA NF [Suspect]
     Active Substance: ANTI-INHIBITOR COAGULANT COMPLEX
     Dosage: 1500 INTERNATIONAL UNIT, 3/WEEK
     Dates: start: 20210211
  12. FEIBA NF [Suspect]
     Active Substance: ANTI-INHIBITOR COAGULANT COMPLEX
     Dosage: 1500 INTERNATIONAL UNIT, 3/WEEK
     Dates: start: 202102
  13. COAGULATION FACTOR VIIA RECOMBINANT HUMAN [Suspect]
     Active Substance: COAGULATION FACTOR VIIA RECOMBINANT HUMAN
     Indication: Factor VIII deficiency
  14. COAGULATION FACTOR VIIA RECOMBINANT HUMAN [Suspect]
     Active Substance: COAGULATION FACTOR VIIA RECOMBINANT HUMAN
     Dosage: 2 INTERNATIONAL UNIT, 3/WEEK
  15. COAGULATION FACTOR VIIA RECOMBINANT HUMAN [Suspect]
     Active Substance: COAGULATION FACTOR VIIA RECOMBINANT HUMAN
     Dosage: 2 MILLIGRAM, 3/WEEK
     Dates: start: 2021
  16. CAPTOPRIL [Concomitant]
     Active Substance: CAPTOPRIL
     Indication: Congenital cardiovascular anomaly
     Dosage: 3 MILLILITER, TID
     Dates: start: 202001
  17. FUROSEMIDE [Concomitant]
     Active Substance: FUROSEMIDE
     Indication: Pollakiuria
     Dosage: 1.5 MILLILITER, QD
     Dates: start: 20201017
  18. METOPROLOL [Concomitant]
     Active Substance: METOPROLOL
     Indication: Congenital cardiovascular anomaly
     Dosage: 0.5 MILLIGRAM, BID
     Dates: start: 202101
  19. METOPROLOL [Concomitant]
     Active Substance: METOPROLOL
     Dosage: 0.5 UNK, BID

REACTIONS (13)
  - Inhibitory drug interaction [Unknown]
  - Anti factor VIII antibody positive [Recovering/Resolving]
  - Contusion [Recovering/Resolving]
  - Haemarthrosis [Not Recovered/Not Resolved]
  - Injection site swelling [Recovered/Resolved]
  - Rash macular [Not Recovered/Not Resolved]
  - Weight increased [Recovered/Resolved]
  - Gait disturbance [Recovering/Resolving]
  - Haematoma [Not Recovered/Not Resolved]
  - Anti factor VIII antibody increased [Recovering/Resolving]
  - Drug intolerance [Recovering/Resolving]
  - Off label use [Unknown]
  - Extra dose administered [Recovered/Resolved]

NARRATIVE: CASE EVENT DATE: 20200211
